FAERS Safety Report 4990855-4 (Version None)
Quarter: 2006Q2

REPORT INFORMATION
  Report Type: 
  Country: None (occurrence: None)
  Receive Date: 20060428
  Receipt Date: 20060418
  Transmission Date: 20061013
  Serious: Yes (Hospitalization)
  Sender: FDA-Public Use
  Company Number: HQWYE879120APR06

PATIENT
  Age: 27 Year
  Sex: Male
  Weight: 103.06 kg

DRUGS (11)
  1. RAPAMUNE [Suspect]
     Indication: PROPHYLAXIS AGAINST TRANSPLANT REJECTION
     Dosage: 18 MG 1X PER 1 DAY ORAL ; 16 MG 1X PER 1 DAY ORAL
     Route: 048
     Dates: start: 20060418, end: 20060401
  2. RAPAMUNE [Suspect]
     Indication: PROPHYLAXIS AGAINST TRANSPLANT REJECTION
     Dosage: 18 MG 1X PER 1 DAY ORAL ; 16 MG 1X PER 1 DAY ORAL
     Route: 048
     Dates: start: 20060323, end: 20060417
  3. CELLCEPT [Suspect]
     Indication: PROPHYLAXIS AGAINST TRANSPLANT REJECTION
     Dosage: 1000 MG 1X PER 12 HR, ORAL
     Route: 048
     Dates: start: 20060323
  4. PREDNISONE TAB [Suspect]
     Indication: PROPHYLAXIS AGAINST TRANSPLANT REJECTION
     Dosage: 30 MG 1X PER 1 DAY ORAL
     Route: 048
  5. TOPROL-XL [Concomitant]
  6. MYCELEX [Concomitant]
  7. CLONIDINE [Concomitant]
  8. AXID (NIZATIDIINE) [Concomitant]
  9. KEFLEX [Concomitant]
  10. FERROUS SULFATE TAB [Concomitant]
  11. BACTRIM [Concomitant]

REACTIONS (6)
  - CARDIAC FLUTTER [None]
  - IMMUNOSUPPRESSANT DRUG LEVEL INCREASED [None]
  - ODYNOPHAGIA [None]
  - OESOPHAGEAL ULCER [None]
  - SUPRAVENTRICULAR TACHYCARDIA [None]
  - VIRAL INFECTION [None]
